FAERS Safety Report 24092622 (Version 1)
Quarter: 2024Q3

REPORT INFORMATION
  Report Type: Spontaneous
  Country: CA (occurrence: CA)
  Receive Date: 20240715
  Receipt Date: 20240715
  Transmission Date: 20241017
  Serious: Yes (Disabling)
  Sender: ORGANON
  Company Number: CA-ORGANON-O2407CAN001238

PATIENT
  Age: 68 Year
  Sex: Female

DRUGS (1)
  1. ZOCOR [Suspect]
     Active Substance: SIMVASTATIN
     Indication: Hypercholesterolaemia
     Dosage: 20.0 MILLIGRAM, 1 EVERY 1 DAYS
     Route: 048

REACTIONS (2)
  - Muscle atrophy [Recovering/Resolving]
  - Muscle spasms [Recovering/Resolving]
